FAERS Safety Report 20862061 (Version 1)
Quarter: 2022Q2

REPORT INFORMATION
  Report Type: Spontaneous
  Country: IT (occurrence: IT)
  Receive Date: 20220523
  Receipt Date: 20220523
  Transmission Date: 20220721
  Serious: Yes (Hospitalization)
  Sender: FDA-Public Use
  Company Number: None

PATIENT
  Age: 54 Year
  Sex: Female

DRUGS (6)
  1. BISOPROLOL [Suspect]
     Active Substance: BISOPROLOL
     Indication: Hypertension
     Dosage: 1.25 MILLIGRAM, QD
     Dates: start: 20210101
  2. DRONEDARONE [Suspect]
     Active Substance: DRONEDARONE
     Indication: Atrial fibrillation
     Dosage: 1 DOSAGE FORM, QD
     Dates: start: 20210101
  3. COUMADIN [Concomitant]
     Active Substance: WARFARIN SODIUM
     Dosage: UNK
  4. FUROSEMIDE [Concomitant]
     Active Substance: FUROSEMIDE
     Dosage: UNK
  5. RAMIPRIL [Concomitant]
     Active Substance: RAMIPRIL
     Dosage: UNK
  6. KCL RETARD SLOW K [Concomitant]
     Dosage: UNK

REACTIONS (3)
  - Tachycardia [Unknown]
  - Toxicity to various agents [Unknown]
  - Palpitations [Unknown]

NARRATIVE: CASE EVENT DATE: 20220113
